FAERS Safety Report 4316159-0 (Version None)
Quarter: 2004Q1

REPORT INFORMATION
  Report Type: 
  Country: None (occurrence: None)
  Receive Date: 20040311
  Receipt Date: 20040311
  Transmission Date: 20041129
  Serious: Yes (Other)
  Sender: FDA-Public Use
  Company Number: None

PATIENT
  Sex: Male
  Weight: 65.7716 kg

DRUGS (1)
  1. PAXIL [Suspect]
     Indication: CYCLOTHYMIC DISORDER
     Dosage: 20 MG ONCE PER D ORAL
     Route: 048
     Dates: start: 20030215, end: 20040310

REACTIONS (8)
  - DEPRESSION [None]
  - DIZZINESS [None]
  - HEADACHE [None]
  - LIBIDO DECREASED [None]
  - NAUSEA [None]
  - PARAESTHESIA [None]
  - VERTIGO [None]
  - VOMITING [None]
